FAERS Safety Report 14449533 (Version 1)
Quarter: 2018Q1

REPORT INFORMATION
  Report Type: Spontaneous
  Country: US (occurrence: US)
  Receive Date: 20180127
  Receipt Date: 20180127
  Transmission Date: 20180509
  Serious: No
  Sender: FDA-Public Use
  Company Number: US-009507513-1801USA006879

PATIENT
  Age: 27 Year
  Sex: Female
  Weight: 45 kg

DRUGS (1)
  1. NEXPLANON [Suspect]
     Active Substance: ETONOGESTREL
     Indication: CONTRACEPTION
     Dosage: 1 DF EVERY 3 YEARS IN LEFT ARM
     Route: 059
     Dates: start: 20170808

REACTIONS (2)
  - Amenorrhoea [Unknown]
  - Pain [Unknown]

NARRATIVE: CASE EVENT DATE: 20170901
